FAERS Safety Report 18862853 (Version 2)
Quarter: 2021Q1

REPORT INFORMATION
  Report Type: Report from Study
  Country: CA (occurrence: CA)
  Receive Date: 20210208
  Receipt Date: 20210322
  Transmission Date: 20210420
  Serious: Yes (Other)
  Sender: FDA-Public Use
  Company Number: CA-TAKEDA-CA202030462

PATIENT
  Age: 11 Year
  Sex: Male

DRUGS (3)
  1. HIZENTRA [Concomitant]
     Active Substance: HUMAN IMMUNOGLOBULIN G
     Indication: PRODUCT USED FOR UNKNOWN INDICATION
  2. GAMMAGARD LIQUID [Suspect]
     Active Substance: HUMAN IMMUNOGLOBULIN G
     Indication: PRIMARY IMMUNODEFICIENCY SYNDROME
     Dosage: 5 GRAM, 1X/WEEK
     Route: 058
     Dates: start: 20180911
  3. HIZENTRA [Concomitant]
     Active Substance: HUMAN IMMUNOGLOBULIN G
     Indication: PRODUCT USED FOR UNKNOWN INDICATION

REACTIONS (16)
  - Palatal disorder [Unknown]
  - Pyrexia [Unknown]
  - Abdominal discomfort [Unknown]
  - Decubitus ulcer [Recovering/Resolving]
  - Diaphragmatic paralysis [Unknown]
  - Fatigue [Unknown]
  - Injection site haemorrhage [Unknown]
  - Needle issue [Unknown]
  - Thrombocytopenia [Unknown]
  - Contusion [Not Recovered/Not Resolved]
  - Incorrect product administration duration [Not Recovered/Not Resolved]
  - Device infusion issue [Recovered/Resolved]
  - Insomnia [Unknown]
  - Scoliosis [Not Recovered/Not Resolved]
  - Aspiration [Unknown]
  - Abnormal clotting factor [Unknown]

NARRATIVE: CASE EVENT DATE: 20200908
